FAERS Safety Report 15482297 (Version 3)
Quarter: 2018Q4

REPORT INFORMATION
  Report Type: Report from Study
  Country: None (occurrence: BE)
  Receive Date: 20181010
  Receipt Date: 20181127
  Transmission Date: 20190205
  Serious: Yes (Death, Hospitalization, Other)
  Sender: FDA-Public Use
  Company Number: BE-ABBVIE-18K-013-2515208-00

PATIENT
  Age: 69 Year

DRUGS (37)
  1. RITUXIMAB. [Concomitant]
     Active Substance: RITUXIMAB
     Dosage: 1 CYCLE
     Dates: start: 20180122
  2. PANTOMED (PANTOPRAZOLE SODIUM SESQUIHYDRATE) [Concomitant]
     Active Substance: PANTOPRAZOLE SODIUM
     Indication: PRODUCT USED FOR UNKNOWN INDICATION
  3. VENCLYXTO [Suspect]
     Active Substance: VENETOCLAX
     Indication: DIFFUSE LARGE B-CELL LYMPHOMA
     Route: 065
     Dates: start: 201802, end: 2018
  4. CISPLATIN. [Concomitant]
     Active Substance: CISPLATIN
     Indication: PRODUCT USED FOR UNKNOWN INDICATION
     Dosage: STOP DATE: 1 CYCLE PRIOR TO VENCLYXTO
     Dates: start: 20171020
  5. DEXAMETHASONE. [Concomitant]
     Active Substance: DEXAMETHASONE
     Dates: start: 20180816
  6. LENALIDOMIDE [Concomitant]
     Active Substance: LENALIDOMIDE
     Dosage: CU 1 CYCLE
     Dates: start: 20180407, end: 2018
  7. RITUXIMAB. [Concomitant]
     Active Substance: RITUXIMAB
     Dosage: 1 CYCLE
     Dates: start: 20171020
  8. GEMCITABINE [Concomitant]
     Active Substance: GEMCITABINE\GEMCITABINE HYDROCHLORIDE
     Dosage: 1 CYCLE 50% DOSE REDUCTION
     Dates: start: 20180510, end: 2018
  9. LENALIDOMIDE [Concomitant]
     Active Substance: LENALIDOMIDE
     Dates: start: 20180720
  10. MEDROL [Concomitant]
     Active Substance: METHYLPREDNISOLONE
     Indication: PRODUCT USED FOR UNKNOWN INDICATION
  11. DEXAMETHASONE. [Concomitant]
     Active Substance: DEXAMETHASONE
     Indication: PRODUCT USED FOR UNKNOWN INDICATION
     Dosage: PRIOR TO VENCLYXTO 1 CYCLE
     Dates: start: 20171020
  12. CYTARABINE. [Concomitant]
     Active Substance: CYTARABINE
     Indication: PRODUCT USED FOR UNKNOWN INDICATION
     Dosage: STOP DATE: PRIOR TO VENCLYXTO 1 CYCLE
     Dates: start: 20171020
  13. GEMCITABINE [Concomitant]
     Active Substance: GEMCITABINE\GEMCITABINE HYDROCHLORIDE
     Dates: start: 20180711
  14. GAZYVARO [Concomitant]
     Active Substance: OBINUTUZUMAB
     Indication: PRODUCT USED FOR UNKNOWN INDICATION
     Dosage: 1 CYCLE
     Dates: start: 20180615, end: 2018
  15. GAZYVARO [Concomitant]
     Active Substance: OBINUTUZUMAB
     Dosage: 1 CYCLE
     Dates: start: 20180711, end: 2018
  16. GAZYVARO [Concomitant]
     Active Substance: OBINUTUZUMAB
     Dosage: 1 CYCLE
     Dates: start: 20180816
  17. EFFORTIL [Concomitant]
     Active Substance: ETILEFRINE HYDROCHLORIDE
     Indication: PRODUCT USED FOR UNKNOWN INDICATION
     Dosage: IF NECESSARY
  18. RITUXIMAB. [Concomitant]
     Active Substance: RITUXIMAB
     Dosage: 1 CYCLE
     Dates: start: 20171123
  19. RITUXIMAB. [Concomitant]
     Active Substance: RITUXIMAB
     Dosage: 1 CYCLE
     Dates: start: 20180510
  20. CISPLATIN. [Concomitant]
     Active Substance: CISPLATIN
     Dates: start: 20180816
  21. CYTARABINE. [Concomitant]
     Active Substance: CYTARABINE
     Dates: start: 20180816
  22. GEMCITABINE [Concomitant]
     Active Substance: GEMCITABINE\GEMCITABINE HYDROCHLORIDE
     Dosage: 1 CYCLE
     Dates: start: 20180407, end: 2018
  23. GEMCITABINE [Concomitant]
     Active Substance: GEMCITABINE\GEMCITABINE HYDROCHLORIDE
     Dosage: START DATE: AFTER START VENCLYXTO
     Dates: start: 2018, end: 2018
  24. LENALIDOMIDE [Concomitant]
     Active Substance: LENALIDOMIDE
     Dosage: CU 1 CYCLE
     Dates: start: 20180615, end: 2018
  25. RITUXIMAB. [Concomitant]
     Active Substance: RITUXIMAB
     Indication: PRODUCT USED FOR UNKNOWN INDICATION
     Dosage: 1 CYCLE
     Dates: start: 20170109
  26. RITUXIMAB. [Concomitant]
     Active Substance: RITUXIMAB
     Dosage: 1 CYCLE
     Dates: start: 20180407
  27. DEXAMETHASONE. [Concomitant]
     Active Substance: DEXAMETHASONE
     Dosage: AFTER START VENCLYXTO
  28. LENALIDOMIDE [Concomitant]
     Active Substance: LENALIDOMIDE
     Indication: PRODUCT USED FOR UNKNOWN INDICATION
     Dosage: CU 1 CYCLE
     Dates: start: 20180122, end: 2018
  29. LENALIDOMIDE [Concomitant]
     Active Substance: LENALIDOMIDE
     Dates: start: 20180711, end: 201807
  30. VFEND [Concomitant]
     Active Substance: VORICONAZOLE
     Indication: PRODUCT USED FOR UNKNOWN INDICATION
  31. TEMESTA [LORAZEPAM] [Concomitant]
     Active Substance: LORAZEPAM
     Indication: PRODUCT USED FOR UNKNOWN INDICATION
  32. VENCLYXTO [Suspect]
     Active Substance: VENETOCLAX
     Route: 065
     Dates: start: 20180726, end: 20180902
  33. LENALIDOMIDE [Concomitant]
     Active Substance: LENALIDOMIDE
     Dosage: CU 1 CYCLE
     Dates: start: 20180510, end: 2018
  34. RITUXIMAB. [Concomitant]
     Active Substance: RITUXIMAB
     Dosage: 1 CYCLE
     Dates: start: 20170130
  35. GEMCITABINE [Concomitant]
     Active Substance: GEMCITABINE\GEMCITABINE HYDROCHLORIDE
     Indication: PRODUCT USED FOR UNKNOWN INDICATION
     Dosage: 1 CYCLE
     Dates: start: 20180122, end: 2018
  36. CIPROFLOXACIN. [Concomitant]
     Active Substance: CIPROFLOXACIN
     Indication: PRODUCT USED FOR UNKNOWN INDICATION
  37. ISOPHANE INSULIN [Concomitant]
     Active Substance: INSULIN NOS
     Indication: PRODUCT USED FOR UNKNOWN INDICATION

REACTIONS (20)
  - Enterobacter infection [Unknown]
  - Pyrexia [Unknown]
  - Pneumonia [Unknown]
  - Peritonitis [Unknown]
  - Clostridium difficile colitis [Unknown]
  - Abdominal pain upper [Recovered/Resolved]
  - Neoplasm progression [Unknown]
  - Candida sepsis [Unknown]
  - Enterococcal infection [Unknown]
  - General physical health deterioration [Unknown]
  - Vomiting [Recovered/Resolved]
  - Small intestinal perforation [Unknown]
  - Candida infection [Unknown]
  - Syncope [Unknown]
  - Headache [Recovered/Resolved]
  - Anastomotic complication [Unknown]
  - Death [Fatal]
  - Systemic candida [Unknown]
  - Hypertension [Recovered/Resolved]
  - Hypotension [Unknown]

NARRATIVE: CASE EVENT DATE: 2018
